FAERS Safety Report 5566404-9 (Version None)
Quarter: 2007Q4

REPORT INFORMATION
  Report Type: 
  Country: None (occurrence: None)
  Receive Date: 20071217
  Receipt Date: 20071217
  Transmission Date: 20080405
  Serious: No
  Sender: FDA-Public Use
  Company Number: None

PATIENT
  Sex: Male

DRUGS (1)
  1. LIPITOR [Suspect]
     Dates: start: 19900101

REACTIONS (1)
  - MULTIPLE SYSTEM ATROPHY [None]
